FAERS Safety Report 8104060-6 (Version None)
Quarter: 2012Q1

REPORT INFORMATION
  Report Type: 
  Country: None (occurrence: None)
  Receive Date: 20120201
  Receipt Date: 20120126
  Transmission Date: 20120608
  Serious: No
  Sender: FDA-Public Use
  Company Number: US-PFIZER INC-2012024871

PATIENT

DRUGS (1)
  1. FLECTOR [Suspect]
     Indication: ARTHROPATHY
     Dosage: UNK

REACTIONS (1)
  - DRUG INEFFECTIVE [None]
